FAERS Safety Report 7473224 (Version 5)
Quarter: 2013Q3

REPORT INFORMATION
  Report Type: Spontaneous
  Country: US (occurrence: US)
  Receive Date: 20100714
  Receipt Date: 20130912
  Transmission Date: 20140515
  Serious: Yes (Hospitalization, Other)
  Sender: FDA-Public Use
  Company Number: US-BAYER-201027356NA

PATIENT
  Age: 21 Year
  Sex: Female
  Weight: 47 kg

DRUGS (19)
  1. YAZ [Suspect]
     Indication: ENDOMETRIOSIS
     Dosage: UNK
     Dates: start: 200902, end: 200906
  2. YAZ [Suspect]
     Indication: ENDOMETRIOSIS
     Dosage: UNK
     Dates: start: 200902, end: 201004
  3. YAZ [Suspect]
     Indication: ENDOMETRIOSIS
     Dosage: UNK
     Route: 048
  4. OCELLA [Suspect]
     Indication: ENDOMETRIOSIS
     Dosage: UNK
     Dates: start: 200902, end: 200906
  5. OCELLA [Suspect]
     Indication: ENDOMETRIOSIS
     Dosage: UNK
     Dates: start: 200902, end: 201004
  6. OCELLA [Suspect]
     Indication: ENDOMETRIOSIS
     Dosage: UNK
     Route: 048
  7. NEXIUM [Concomitant]
     Dosage: 40 MG, QD
     Route: 048
  8. FLUOXETINE [Concomitant]
     Dosage: 20 MG, OM
     Route: 048
  9. BELLADONNA AND PHENOBARBITONE [Concomitant]
     Dosage: 2 TABS, TID
     Route: 048
  10. MEPROZINE [Concomitant]
     Dosage: 1 CAPSULE, PRN
     Route: 048
  11. PROMETHAZINE [Concomitant]
     Dosage: 1-2 TABS, PRN
     Route: 048
  12. LEVONORGESTREL W/ETHINYLESTRADIOL [Concomitant]
  13. LOESTRIN FE [Concomitant]
  14. MICROGESTIN [Concomitant]
  15. ALEVE LIQUID GEL CAPS [Concomitant]
     Dosage: UNK
     Dates: start: 2002
  16. VITAMINS [Concomitant]
     Dosage: UNK
     Dates: start: 2006
  17. B12 [Concomitant]
     Dosage: 1000 MG, UNK
     Dates: start: 2008
  18. IRON [Concomitant]
     Dosage: 27 MG, QD
     Dates: start: 2007, end: 2009
  19. VITAMIN C AND E [Concomitant]
     Dosage: UNK
     Dates: start: 2006

REACTIONS (6)
  - Cardiovascular disorder [Unknown]
  - Tachycardia [Unknown]
  - Cholecystectomy [None]
  - Biliary dyskinesia [Unknown]
  - Off label use [None]
  - Mental disorder [None]
